FAERS Safety Report 9290022 (Version 1)
Quarter: 2013Q2

REPORT INFORMATION
  Report Type: Spontaneous
  Country: US (occurrence: None)
  Receive Date: 20130514
  Receipt Date: 20130514
  Transmission Date: 20140414
  Serious: No
  Sender: FDA-Public Use
  Company Number: None

PATIENT
  Age: 60 Year
  Sex: Male

DRUGS (1)
  1. HYDRALAZINE [Suspect]
     Dates: start: 20101219, end: 20110205

REACTIONS (16)
  - Drug-induced liver injury [None]
  - Blood creatinine increased [None]
  - Proteinuria [None]
  - Haemodialysis [None]
  - Jaundice [None]
  - Blood alkaline phosphatase [None]
  - Blood bilirubin increased [None]
  - Aspartate aminotransferase increased [None]
  - Alanine aminotransferase increased [None]
  - Cholestasis [None]
  - Hepatic fibrosis [None]
  - Biliary tract disorder [None]
  - Infarction [None]
  - Post procedural haematoma [None]
  - Eosinophilia [None]
  - Pruritus [None]
